FAERS Safety Report 24401559 (Version 1)
Quarter: 2024Q4

REPORT INFORMATION
  Report Type: Spontaneous
  Country: US (occurrence: US)
  Receive Date: 20241007
  Receipt Date: 20241007
  Transmission Date: 20250115
  Serious: No
  Sender: ALK-ABELLO
  Company Number: US-ALK-ABELLO A/S-2024AA003512

PATIENT

DRUGS (6)
  1. CARYA ILLINOINENSIS POLLEN [Suspect]
     Active Substance: CARYA ILLINOINENSIS POLLEN
     Indication: Diagnostic procedure
  2. DAE BULK 764 [Concomitant]
  3. DAE BULK 765 [Concomitant]
  4. DAE BULK 763 [Concomitant]
  5. DAE BULK 766 [Concomitant]
  6. PISTACHIO NUT [Concomitant]
     Active Substance: PISTACHIO

REACTIONS (1)
  - False negative investigation result [Unknown]
